FAERS Safety Report 14972278 (Version 2)
Quarter: 2018Q2

REPORT INFORMATION
  Report Type: Report from Study
  Country: TW (occurrence: TW)
  Receive Date: 20180605
  Receipt Date: 20180626
  Transmission Date: 20180711
  Serious: Yes (Death, Hospitalization, Other)
  Sender: FDA-Public Use
  Company Number: TW-INCYTE CORPORATION-2017IN008406

PATIENT

DRUGS (11)
  1. SOMATOSAN [Concomitant]
     Indication: OESOPHAGEAL VARICES HAEMORRHAGE
     Dosage: 6 MG, QD, CONTINUOUS
     Route: 041
     Dates: start: 20170915
  2. CYTOSAR [Concomitant]
     Active Substance: CYTARABINE
     Indication: TRANSFORMATION TO ACUTE MYELOID LEUKAEMIA
     Dosage: 20 MG, UNK
     Route: 065
     Dates: start: 20180512, end: 201805
  3. JAKAVI [Suspect]
     Active Substance: RUXOLITINIB
     Dosage: 20 MG, QD
     Route: 048
     Dates: start: 20180508
  4. FLUMARIN [Concomitant]
     Active Substance: FLOMOXEF SODIUM
     Indication: OESOPHAGEAL VARICES HAEMORRHAGE
     Dosage: 1000 MG, Q12H
     Route: 065
     Dates: start: 20180315
  5. SOMATOSAN [Concomitant]
     Dosage: 6 MG, QD
     Route: 065
     Dates: start: 20180315
  6. JAKAVI [Suspect]
     Active Substance: RUXOLITINIB
     Dosage: 20 MG, QD
     Route: 048
     Dates: start: 20180426, end: 20180429
  7. TRANSAMIN [Concomitant]
     Active Substance: TRANEXAMIC ACID
     Indication: OESOPHAGEAL VARICES HAEMORRHAGE
     Dosage: 1000 MG, Q8H
     Route: 041
     Dates: start: 20170915
  8. JAKAVI [Suspect]
     Active Substance: RUXOLITINIB
     Indication: MYELOFIBROSIS
     Dosage: 20 MG, QD
     Route: 048
     Dates: start: 20170613, end: 20170718
  9. JAKAVI [Suspect]
     Active Substance: RUXOLITINIB
     Dosage: 40 MG, QD
     Route: 048
     Dates: start: 20170719, end: 20180425
  10. TRANSAMIN [Concomitant]
     Active Substance: TRANEXAMIC ACID
     Dosage: 1000 MG, Q12H
     Route: 065
     Dates: start: 20180315
  11. JAKAVI [Suspect]
     Active Substance: RUXOLITINIB
     Dosage: 20 MG, QD
     Route: 048
     Dates: start: 20180430

REACTIONS (21)
  - Abdominal pain [Not Recovered/Not Resolved]
  - Acute kidney injury [Not Recovered/Not Resolved]
  - Blood creatine increased [Not Recovered/Not Resolved]
  - Haemoglobin decreased [Not Recovered/Not Resolved]
  - Transformation to acute myeloid leukaemia [Fatal]
  - Blast cell count increased [Unknown]
  - Abdominal infection [Recovering/Resolving]
  - Haematocrit decreased [Not Recovered/Not Resolved]
  - Platelet count decreased [Not Recovered/Not Resolved]
  - Myelofibrosis [Fatal]
  - Septic shock [Recovering/Resolving]
  - Vomiting [Not Recovered/Not Resolved]
  - Thrombosis [Not Recovered/Not Resolved]
  - Blood urea increased [Not Recovered/Not Resolved]
  - White blood cell count decreased [Not Recovered/Not Resolved]
  - Pyrexia [Not Recovered/Not Resolved]
  - Hypotension [Not Recovered/Not Resolved]
  - Acidosis [Not Recovered/Not Resolved]
  - Oesophageal varices haemorrhage [Not Recovered/Not Resolved]
  - Haematemesis [Not Recovered/Not Resolved]
  - Inappropriate schedule of drug administration [Not Recovered/Not Resolved]

NARRATIVE: CASE EVENT DATE: 20170915
